FAERS Safety Report 9170488 (Version 4)
Quarter: 2013Q4

REPORT INFORMATION
  Report Type: Spontaneous
  Country: None (occurrence: None)
  Receive Date: 20130312
  Receipt Date: 20131024
  Transmission Date: 20140711
  Serious: Yes (Disabling, Other)
  Sender: FDA-Public Use
  Company Number: ACO_34681_2013

PATIENT
  Age: 64 Year
  Sex: Female
  Weight: 136.1 kg

DRUGS (33)
  1. AMPYRA (DALFAMPRIDINE) TABLET, 10MG [Suspect]
     Indication: GAIT DISTURBANCE
     Dosage: 10 MG, Q 12 HRS, ORAL
     Route: 048
     Dates: start: 20110408, end: 201301
  2. CARBAMAZEPINE (CARBAMAZEPINE) [Concomitant]
  3. ASPIRIN (ACETYLSALICYLIC ACID) [Concomitant]
  4. ARICEPT (DONEPEZIL HYDROCHLORIDE) [Concomitant]
  5. MULTIVITAMIN (VITAMINS NOS) [Concomitant]
  6. GLUCOSAMINE CHONDROITIN (CHONDROITIN SULFATE, GLUCOSAMINE) [Concomitant]
  7. DIPHENHYDRAMINE HCL (DIPHENHYDRAMINE HYDROCHLORIDE) [Concomitant]
  8. REGLAN (METOCLOPRAMIDE HYDROCHLORIDE [Concomitant]
  9. HYDROCODONE BITARTRATE AND ACETAMINOPHEN [Concomitant]
  10. LOSARTAN POTASSIUM (LOSARTAN POTASSIUM) [Concomitant]
  11. ACID REDUCER (RANITIDINE HYDROCHLORIDE) [Concomitant]
  12. VITAMIN D3 (COLECALCIFEROL) [Concomitant]
  13. TRAMADOL HCL [Concomitant]
  14. OXYBUTYNIN CHLORIDE (OXYBUTYNIN HYDROCHLORIDE) [Concomitant]
  15. MELATONIN (MELATONIN) [Concomitant]
  16. GABAPENTIN (GABAPENTIN) [Concomitant]
  17. FERROUS SULFATE (FERROUS SULFATE) [Concomitant]
  18. DESMOPRESSIN ACETATE (DESMOPRESSIN ACETATE) [Concomitant]
  19. COPAXONE [Concomitant]
  20. ARIMIDEX (ANASTROZOLE) [Concomitant]
  21. PRIMIDONE (PRIMIDONE) [Concomitant]
  22. METHIMAZOLE (THIAMAZOLE) [Concomitant]
  23. DONEPEZIL HCL (DONEPEZIL HYDROCHLORIDE) [Concomitant]
  24. DETROL LA (TOLTERODINE I-TARTRATE) [Concomitant]
  25. VOLTAREN (DICLOFENAC DIETHYLAMINE) [Concomitant]
  26. TROSPIUM CHLORIDE GLENMARK (TROSPIUM CHLORIDE) [Concomitant]
  27. CALMOSEPTINE (CALAMINE) [Concomitant]
  28. PROPRANOLOL HYDROCHLORIDE (PROPRANOLOL HYDROCHLORIDE) [Concomitant]
  29. PREDNISONE (PREDNISONE) [Suspect]
  30. SYMBICORT [Concomitant]
  31. RANITIDINE (RANITIDINE HYDROCHLORIDE) [Concomitant]
  32. TOVIAZ (FESOTERODINE FUMARATE) [Concomitant]
  33. CORTICOSTEROIDS [Concomitant]

REACTIONS (4)
  - Abasia [None]
  - Amnesia [None]
  - Dysstasia [None]
  - Drug ineffective [None]
